FAERS Safety Report 23999733 (Version 2)
Quarter: 2024Q3

REPORT INFORMATION
  Report Type: Report from Study
  Country: US (occurrence: US)
  Receive Date: 20240621
  Receipt Date: 20240716
  Transmission Date: 20241016
  Serious: Yes (Hospitalization)
  Sender: ACADIA PHARMACEUTICALS
  Company Number: US-ACADIA PHARMACEUTICALS INC.-ACA-2024-PIM-002610

PATIENT
  Age: 78 Year
  Sex: Male

DRUGS (11)
  1. NUPLAZID [Suspect]
     Active Substance: PIMAVANSERIN TARTRATE
     Indication: Parkinson^s disease psychosis
     Dosage: 34 MILLIGRAM, QD
     Route: 048
  2. NUPLAZID [Suspect]
     Active Substance: PIMAVANSERIN TARTRATE
     Dosage: 34 MILLIGRAM, QD
     Route: 048
     Dates: start: 20240521, end: 20240527
  3. ATORVASTATIN [Concomitant]
     Active Substance: ATORVASTATIN
  4. CARBIDOPA\LEVODOPA [Concomitant]
     Active Substance: CARBIDOPA\LEVODOPA
  5. MELOXICAM [Concomitant]
     Active Substance: MELOXICAM
  6. MIDODRINE [Concomitant]
     Active Substance: MIDODRINE
  7. MONTELUKAST [Concomitant]
     Active Substance: MONTELUKAST SODIUM
  8. OMEPRAZOLE [Concomitant]
     Active Substance: OMEPRAZOLE
  9. SEROQUEL [Concomitant]
     Active Substance: QUETIAPINE FUMARATE
  10. TRAZODONE [Concomitant]
     Active Substance: TRAZODONE HYDROCHLORIDE
  11. VIMPAT [Concomitant]
     Active Substance: LACOSAMIDE

REACTIONS (1)
  - Confusional state [Recovered/Resolved]

NARRATIVE: CASE EVENT DATE: 20240521
